FAERS Safety Report 4682042-4 (Version None)
Quarter: 2005Q2

REPORT INFORMATION
  Report Type: 
  Country: None (occurrence: None)
  Receive Date: 20050602
  Receipt Date: 20050519
  Transmission Date: 20051028
  Serious: Yes (Other)
  Sender: FDA-Public Use
  Company Number: B0381732A

PATIENT
  Age: 14 Year
  Sex: Male

DRUGS (1)
  1. ZOVIRAX [Suspect]

REACTIONS (11)
  - ABNORMAL BEHAVIOUR [None]
  - CSF TEST ABNORMAL [None]
  - ENCEPHALITIS HERPES [None]
  - GRAND MAL CONVULSION [None]
  - HEADACHE [None]
  - HERPES SIMPLEX SEROLOGY POSITIVE [None]
  - INCONTINENCE [None]
  - NERVOUS SYSTEM DISORDER [None]
  - NUCLEAR MAGNETIC RESONANCE IMAGING BRAIN ABNORMAL [None]
  - PSYCHIATRIC SYMPTOM [None]
  - VOMITING [None]
